FAERS Safety Report 5573369-2 (Version None)
Quarter: 2007Q4

REPORT INFORMATION
  Report Type: 
  Country: None (occurrence: None)
  Receive Date: 20071220
  Receipt Date: 20071220
  Transmission Date: 20080405
  Serious: Yes (Other)
  Sender: FDA-Public Use
  Company Number: None

PATIENT
  Sex: Male

DRUGS (3)
  1. OXYCODONE 5MG ONCE PO BID (GENERIC) [Suspect]
  2. OXYCONTIN 40MG CR ONCE PO Q6 [Suspect]
  3. OXYCODONE 80MG XR ONCE PO Q12 [Suspect]

REACTIONS (2)
  - INADEQUATE ANALGESIA [None]
  - PHARMACEUTICAL PRODUCT COMPLAINT [None]
